FAERS Safety Report 14046200 (Version 2)
Quarter: 2017Q4

REPORT INFORMATION
  Report Type: Spontaneous
  Country: US (occurrence: US)
  Receive Date: 20171005
  Receipt Date: 20171027
  Transmission Date: 20180321
  Serious: No
  Sender: FDA-Public Use
  Company Number: US-PFIZER INC-2017425900

PATIENT
  Age: 51 Year
  Sex: Female

DRUGS (2)
  1. ATROPINE SULFATE W/DIPHENOXYLATE [Suspect]
     Active Substance: ATROPINE SULFATE\DIPHENOXYLATE
     Indication: ABDOMINAL PAIN
     Dosage: 2.5 MG, UNK
  2. ATROPINE SULFATE W/DIPHENOXYLATE [Suspect]
     Active Substance: ATROPINE SULFATE\DIPHENOXYLATE
     Indication: DIARRHOEA

REACTIONS (1)
  - Drug ineffective [Recovered/Resolved]
